FAERS Safety Report 5598208-5 (Version None)
Quarter: 2008Q1

REPORT INFORMATION
  Report Type: 
  Country: None (occurrence: None)
  Receive Date: 20080117
  Receipt Date: 20080117
  Transmission Date: 20080703
  Serious: Yes (Other)
  Sender: FDA-Public Use
  Company Number: None

PATIENT
  Sex: Female
  Weight: 71.44 kg

DRUGS (1)
  1. TAXOL [Suspect]
     Dosage: 4.9ML  50ML/HR

REACTIONS (8)
  - BLOOD PRESSURE SYSTOLIC INCREASED [None]
  - CHEST DISCOMFORT [None]
  - ERYTHEMA [None]
  - FLUSHING [None]
  - HEADACHE [None]
  - HEART RATE INCREASED [None]
  - INFUSION RELATED REACTION [None]
  - PRURITUS [None]
